FAERS Safety Report 23888640 (Version 1)
Quarter: 2024Q2

REPORT INFORMATION
  Report Type: Spontaneous
  Country: US (occurrence: None)
  Receive Date: 20240522
  Receipt Date: 20240522
  Transmission Date: 20240716
  Serious: No
  Sender: FDA-Public Use
  Company Number: None

PATIENT
  Sex: Male

DRUGS (2)
  1. LENALIDOMIDE [Suspect]
     Active Substance: LENALIDOMIDE
     Indication: Plasma cell myeloma
     Dosage: FREQUENCY : AS DIRECTED;?
     Route: 048
     Dates: start: 202308
  2. REVLIMID [Concomitant]
     Active Substance: LENALIDOMIDE

REACTIONS (4)
  - Asthenia [None]
  - Fatigue [None]
  - Dizziness [None]
  - Therapy interrupted [None]
